FAERS Safety Report 25268821 (Version 1)
Quarter: 2025Q2

REPORT INFORMATION
  Report Type: Spontaneous
  Country: CN (occurrence: CN)
  Receive Date: 20250505
  Receipt Date: 20250505
  Transmission Date: 20250717
  Serious: Yes (Hospitalization)
  Sender: ABBVIE
  Company Number: CN-ABBVIE-6263835

PATIENT
  Age: 58 Year
  Sex: Male
  Weight: 45 kg

DRUGS (6)
  1. VENETOCLAX [Suspect]
     Active Substance: VENETOCLAX
     Indication: Plasma cell myeloma
     Route: 048
     Dates: start: 20250407
  2. SELINEXOR [Suspect]
     Active Substance: SELINEXOR
     Indication: Plasma cell myeloma
     Dosage: 60 MILLIGRAM
     Route: 048
     Dates: start: 20250414, end: 20250414
  3. SELINEXOR [Suspect]
     Active Substance: SELINEXOR
     Indication: Plasma cell myeloma
     Dosage: 80 MILLIGRAM
     Route: 048
     Dates: start: 20250409, end: 20250409
  4. SELINEXOR [Suspect]
     Active Substance: SELINEXOR
     Indication: Plasma cell myeloma
     Dosage: 80 MILLIGRAM
     Route: 048
     Dates: start: 20250407, end: 20250407
  5. SELINEXOR [Suspect]
     Active Substance: SELINEXOR
     Indication: Plasma cell myeloma
     Dosage: 60 MILLIGRAM
     Route: 048
     Dates: start: 20250416, end: 20250416
  6. CONTEZOLID [Suspect]
     Active Substance: CONTEZOLID
     Indication: Soft tissue infection
     Dosage: 1600 MILLIGRAM
     Route: 048
     Dates: start: 20250408, end: 20250414

REACTIONS (4)
  - Dysphagia [Recovered/Resolved]
  - Nausea [Recovering/Resolving]
  - Vomiting [Recovered/Resolved]
  - Decreased appetite [Recovering/Resolving]

NARRATIVE: CASE EVENT DATE: 20250408
